FAERS Safety Report 16727256 (Version 13)
Quarter: 2021Q3

REPORT INFORMATION
  Report Type: Report from Study
  Country: US (occurrence: US)
  Receive Date: 20190822
  Receipt Date: 20210825
  Transmission Date: 20211014
  Serious: Yes (Hospitalization, Other)
  Sender: FDA-Public Use
  Company Number: US-SA-2017SA263577

PATIENT
  Age: 56 Year
  Sex: Male
  Weight: 88.45 kg

DRUGS (6)
  1. IMMUNOGLOBULINS NOS [Concomitant]
     Active Substance: IMMUNE GLOBULIN NOS
     Dosage: UNK UNK, UNK
     Route: 065
     Dates: start: 2018
  2. ALEMTUZUMAB [Suspect]
     Active Substance: ALEMTUZUMAB
     Dosage: 12 MG, QD
     Route: 041
     Dates: start: 20160725, end: 20160729
  3. VITAMIN D3 [Concomitant]
     Active Substance: CHOLECALCIFEROL
     Dosage: 5000 IU
     Route: 065
  4. VALACICLOVIR [Concomitant]
     Active Substance: VALACYCLOVIR HYDROCHLORIDE
     Dosage: 1000 MG
     Route: 065
  5. ALEMTUZUMAB [Suspect]
     Active Substance: ALEMTUZUMAB
     Indication: MULTIPLE SCLEROSIS
     Dosage: 12 MG, QD
     Route: 041
     Dates: start: 20170731, end: 20170802
  6. FISH OIL [Concomitant]
     Active Substance: FISH OIL
     Dosage: UNK UNK, UNK
     Route: 065

REACTIONS (29)
  - Plasmapheresis [Recovered/Resolved]
  - Micturition urgency [Not Recovered/Not Resolved]
  - Sinus disorder [Recovering/Resolving]
  - Nasopharyngitis [Recovering/Resolving]
  - Unevaluable event [Unknown]
  - General physical health deterioration [Recovering/Resolving]
  - Malaise [Unknown]
  - Gait disturbance [Recovering/Resolving]
  - Bacterial infection [Unknown]
  - CD4 lymphocytes decreased [Not Recovered/Not Resolved]
  - Blood pressure increased [Unknown]
  - Mycobacterium avium complex infection [Not Recovered/Not Resolved]
  - Pneumonia [Unknown]
  - Oropharyngeal pain [Recovering/Resolving]
  - Multiple sclerosis [Not Recovered/Not Resolved]
  - Pulmonary resection [Unknown]
  - Frustration tolerance decreased [Unknown]
  - Illness [Unknown]
  - Platelet count decreased [Recovering/Resolving]
  - Asthenia [Unknown]
  - Fatigue [Not Recovered/Not Resolved]
  - Infection [Unknown]
  - Neoplasm malignant [Unknown]
  - Tendon disorder [Unknown]
  - Anger [Unknown]
  - Pyrexia [Unknown]
  - Pseudomonas infection [Not Recovered/Not Resolved]
  - Bowel movement irregularity [Not Recovered/Not Resolved]
  - Weight decreased [Unknown]

NARRATIVE: CASE EVENT DATE: 2017
